FAERS Safety Report 5632044-6 (Version None)
Quarter: 2008Q1

REPORT INFORMATION
  Report Type: 
  Country: None (occurrence: None)
  Receive Date: 20080220
  Receipt Date: 20080212
  Transmission Date: 20080703
  Serious: Yes (Other)
  Sender: FDA-Public Use
  Company Number: B0491000A

PATIENT
  Sex: Male

DRUGS (3)
  1. NIQUITIN CQ 2MG LOZENGE [Suspect]
     Dosage: 1LOZ THREE TIMES PER DAY
     Route: 002
     Dates: start: 20070601
  2. INHALERS [Concomitant]
  3. ESCITALOPRAM [Concomitant]
     Indication: DEPRESSION

REACTIONS (3)
  - DEPENDENCE [None]
  - DRUG ABUSE [None]
  - INSOMNIA [None]
